FAERS Safety Report 19416353 (Version 1)
Quarter: 2021Q2

REPORT INFORMATION
  Report Type: Spontaneous
  Country: US (occurrence: US)
  Receive Date: 20210615
  Receipt Date: 20210615
  Transmission Date: 20210717
  Serious: No
  Sender: FDA-Public Use
  Company Number: US-ALLERGAN-2113997US

PATIENT
  Sex: Female

DRUGS (3)
  1. KYBELLA [Suspect]
     Active Substance: DEOXYCHOLIC ACID
     Dosage: UNK, SINGLE
     Route: 065
  2. KYBELLA [Suspect]
     Active Substance: DEOXYCHOLIC ACID
     Dosage: UNK, SINGLE
     Route: 065
  3. KYBELLA [Suspect]
     Active Substance: DEOXYCHOLIC ACID
     Indication: PRODUCT USED FOR UNKNOWN INDICATION
     Dosage: UNK, SINGLE
     Route: 065

REACTIONS (2)
  - Off label use [Unknown]
  - Expired product administered [Unknown]
